FAERS Safety Report 23259144 (Version 1)
Quarter: 2023Q4

REPORT INFORMATION
  Report Type: Spontaneous
  Country: US (occurrence: US)
  Receive Date: 20231204
  Receipt Date: 20231204
  Transmission Date: 20240109
  Serious: No
  Sender: FDA-Public Use
  Company Number: US-HALOZYME THERAPEUTICS, INC.-2023-SPO-TX-0741

PATIENT

DRUGS (1)
  1. XYOSTED [Suspect]
     Active Substance: TESTOSTERONE ENANTHATE
     Indication: Product used for unknown indication
     Dosage: 100 MG/0.5ML, QWK
     Route: 058

REACTIONS (4)
  - Injection site mass [Not Recovered/Not Resolved]
  - Injection site bruising [Unknown]
  - Injection site discolouration [Unknown]
  - Injection site pain [Unknown]

NARRATIVE: CASE EVENT DATE: 20230401
